FAERS Safety Report 4711886-5 (Version None)
Quarter: 2005Q3

REPORT INFORMATION
  Report Type: 
  Country: None (occurrence: None)
  Receive Date: 20050712
  Receipt Date: 20050623
  Transmission Date: 20060218
  Serious: Yes (Hospitalization)
  Sender: FDA-Public Use
  Company Number: US-BRISTOL-MYERS SQUIBB COMPANY-13015813

PATIENT
  Age: 64 Year
  Sex: Male
  Weight: 125 kg

DRUGS (4)
  1. CETUXIMAB [Suspect]
     Indication: NON-SMALL CELL LUNG CANCER STAGE III
     Dosage: 602.5 MG TOTAL ADMINISTERED THIS COURSE.
     Route: 042
     Dates: start: 20050608, end: 20050608
  2. CARBOPLATIN [Suspect]
     Indication: NON-SMALL CELL LUNG CANCER STAGE III
     Dosage: 1274.46 MG TOTAL DOSE ADMINISTERED THIS COURSE.
     Route: 042
     Dates: start: 20050608, end: 20050608
  3. PACLITAXEL [Suspect]
     Indication: NON-SMALL CELL LUNG CANCER STAGE III
     Dosage: 482 MG TOTAL DOSE ADMINISTERED THIS COURSE.
     Route: 042
     Dates: start: 20050608, end: 20050608
  4. RADIATION THERAPY [Suspect]
     Indication: NON-SMALL CELL LUNG CANCER STAGE III
     Dosage: 6300 CGY VIA EXTERNAL BEAM.  35 FRACTIONS/28 ELAPSED DAYS.
     Dates: start: 20050426, end: 20050426

REACTIONS (5)
  - DYSPNOEA [None]
  - MYOCARDIAL INFARCTION [None]
  - MYOCARDIAL ISCHAEMIA [None]
  - PNEUMONITIS [None]
  - RENAL FAILURE [None]
